FAERS Safety Report 4269711-5 (Version None)
Quarter: 2004Q1

REPORT INFORMATION
  Report Type: 
  Country: None (occurrence: None)
  Receive Date: 20040112
  Receipt Date: 20031229
  Transmission Date: 20041129
  Serious: No
  Sender: FDA-Public Use
  Company Number: 03P-163-0245882-00

PATIENT
  Age: 39 Year
  Weight: 67 kg

DRUGS (10)
  1. VALPROATE SODIUM [Suspect]
     Dosage: 600 MG, 1 IN 1 D
     Dates: start: 19980201, end: 20020708
  2. AKINETON [Suspect]
     Indication: EYE ROLLING
     Dosage: 3 MG
     Dates: start: 19840101, end: 20020708
  3. FLUVOXAMINE MALEATE [Suspect]
     Dosage: SEE IMAGE
     Dates: start: 20020618, end: 20020623
  4. FLUVOXAMINE MALEATE [Suspect]
     Dosage: SEE IMAGE
     Dates: start: 20020623, end: 20020708
  5. HALOPERIDOL [Suspect]
     Dosage: 24 MG
     Dates: end: 20020708
  6. LEVOMEPROMAZINE [Suspect]
     Dosage: 550 MG
     Dates: end: 20020708
  7. ZONISAMIDE [Suspect]
     Dosage: 200 MG
     Dates: end: 20020708
  8. CLONAZEPAM [Suspect]
     Dosage: 1 MG
     Dates: end: 20020708
  9. VITAMIN A [Suspect]
     Dosage: 2 DOSAGES FORMS
     Dates: end: 20020708
  10. FLUNITRAZEPAM [Suspect]
     Dosage: 4 MG
     Dates: end: 20020708

REACTIONS (1)
  - NEUROLEPTIC MALIGNANT SYNDROME [None]
